FAERS Safety Report 4683029-8 (Version None)
Quarter: 2005Q2

REPORT INFORMATION
  Report Type: 
  Country: None (occurrence: None)
  Receive Date: 20050606
  Receipt Date: 20041117
  Transmission Date: 20051028
  Serious: Yes (Hospitalization)
  Sender: FDA-Public Use
  Company Number: US-MERCK-0411USA03104

PATIENT
  Age: 74 Year
  Sex: Male

DRUGS (5)
  1. VIOXX [Suspect]
     Route: 048
  2. PLAVIX [Concomitant]
     Route: 065
  3. COREG [Concomitant]
     Route: 065
  4. CYANOCOBALAMIN [Concomitant]
     Route: 030
  5. MONOPRIL [Concomitant]
     Route: 065

REACTIONS (3)
  - CEREBROVASCULAR ACCIDENT [None]
  - ISCHAEMIC CARDIOMYOPATHY [None]
  - PNEUMONIA [None]
